FAERS Safety Report 17846911 (Version 4)
Quarter: 2020Q3

REPORT INFORMATION
  Report Type: Spontaneous
  Country: IT (occurrence: IT)
  Receive Date: 20200601
  Receipt Date: 20200722
  Transmission Date: 20201103
  Serious: Yes (Other)
  Sender: FDA-Public Use
  Company Number: IT-PFIZER INC-2020209991

PATIENT
  Age: 64 Year
  Sex: Male
  Weight: 78 kg

DRUGS (6)
  1. CAPECITABINE. [Suspect]
     Active Substance: CAPECITABINE
     Indication: COLORECTAL CANCER
     Dosage: UNK, CYCLIC (1ST CYCLE) (INFUSION)
     Dates: start: 20160104, end: 201601
  2. CAPECITABINE. [Suspect]
     Active Substance: CAPECITABINE
     Dosage: UNK, CYCLIC (3RD CYCLE) (INFUSION)
     Dates: start: 20160215
  3. OXALIPLATIN. [Suspect]
     Active Substance: OXALIPLATIN
     Dosage: UNK, CYCLIC (2ND CYCLE) (INFUSION)
     Dates: start: 20160125, end: 2016
  4. CAPECITABINE. [Suspect]
     Active Substance: CAPECITABINE
     Dosage: UNK, CYCLIC (2ND CYCLE) (INFUSION)
     Dates: start: 20160125, end: 2016
  5. OXALIPLATIN. [Suspect]
     Active Substance: OXALIPLATIN
     Dosage: UNK, CYCLIC (3RD CYCLE) (INFUSION)
     Dates: start: 20160215
  6. OXALIPLATIN. [Suspect]
     Active Substance: OXALIPLATIN
     Indication: COLORECTAL CANCER
     Dosage: UNK, CYCLIC (1ST CYCLE) (INFUSION)
     Dates: start: 20160104, end: 201601

REACTIONS (4)
  - Neurotoxicity [Recovered/Resolved]
  - Peripheral motor neuropathy [Recovered/Resolved]
  - Hypokalaemia [Recovered/Resolved]
  - Diarrhoea [Recovered/Resolved]

NARRATIVE: CASE EVENT DATE: 2016
